FAERS Safety Report 10237264 (Version 1)
Quarter: 2014Q2

REPORT INFORMATION
  Report Type: Spontaneous
  Country: IT (occurrence: IT)
  Receive Date: 20140613
  Receipt Date: 20140613
  Transmission Date: 20141212
  Serious: Yes (Other)
  Sender: FDA-Public Use
  Company Number: IT-ASTRAZENECA-2014SE39940

PATIENT
  Age: 23566 Day
  Sex: Female

DRUGS (3)
  1. ESOMEPRAZOLE [Suspect]
     Route: 048
     Dates: start: 20140429, end: 20140503
  2. EUTIROX [Concomitant]
     Dates: start: 20060101, end: 20140503
  3. RAMIPRIL [Concomitant]
     Indication: HYPERTENSION
     Dates: start: 20140315, end: 20140503

REACTIONS (4)
  - Localised oedema [Recovering/Resolving]
  - Face oedema [Recovering/Resolving]
  - Pruritus [Recovering/Resolving]
  - Urticaria [Recovering/Resolving]
